FAERS Safety Report 8054525-0 (Version None)
Quarter: 2012Q1

REPORT INFORMATION
  Report Type: 
  Country: None (occurrence: None)
  Receive Date: 20120119
  Receipt Date: 20120110
  Transmission Date: 20120608
  Serious: Yes (Hospitalization, Other)
  Sender: FDA-Public Use
  Company Number: BR-ABBOTT-12P-020-0891654-00

PATIENT
  Sex: Female
  Weight: 60 kg

DRUGS (5)
  1. HUMIRA [Suspect]
     Indication: RHEUMATOID ARTHRITIS
     Route: 058
     Dates: start: 20070101
  2. UNKNOWN DRUG [Concomitant]
     Route: 048
  3. UNKNOWN DRUG [Concomitant]
     Indication: HYPERTENSION
     Route: 048
  4. UNKNOWN DRUG [Concomitant]
     Route: 048
  5. UNKNOWN DRUG [Concomitant]
     Indication: DIABETES MELLITUS
     Route: 048

REACTIONS (3)
  - KIDNEY INFECTION [None]
  - URINARY TRACT INFECTION [None]
  - INFARCTION [None]
